FAERS Safety Report 5642025-4 (Version None)
Quarter: 2008Q1

REPORT INFORMATION
  Report Type: 
  Country: None (occurrence: None)
  Receive Date: 20080225
  Receipt Date: 20080102
  Transmission Date: 20080703
  Serious: No
  Sender: FDA-Public Use
  Company Number: 001#1#2008-00004

PATIENT
  Age: 70 Year
  Sex: Male

DRUGS (1)
  1. NEUPRO [Suspect]
     Dosage: 6 MG/24H (6 MG/24H 1 IN 1 DAY(S)) TRANSDERMAL
     Route: 062

REACTIONS (3)
  - ERYTHEMA [None]
  - MULTIPLE ALLERGIES [None]
  - PHARMACEUTICAL PRODUCT COMPLAINT [None]
